FAERS Safety Report 12647593 (Version 1)
Quarter: 2016Q3

REPORT INFORMATION
  Report Type: Spontaneous
  Country: GR (occurrence: GR)
  Receive Date: 20160812
  Receipt Date: 20160812
  Transmission Date: 20161109
  Serious: Yes (Death, Hospitalization, Other)
  Sender: FDA-Public Use
  Company Number: GR-BIOVITRUM-2016GR0612

PATIENT
  Age: 73 Year
  Sex: Female

DRUGS (5)
  1. KINERET [Suspect]
     Active Substance: ANAKINRA
     Dates: start: 201506
  2. KINERET [Suspect]
     Active Substance: ANAKINRA
     Indication: STILL^S DISEASE ADULT ONSET
     Dates: start: 201506
  3. METOTREXAT [Concomitant]
     Active Substance: METHOTREXATE SODIUM
     Indication: STILL^S DISEASE ADULT ONSET
  4. KINERET [Suspect]
     Active Substance: ANAKINRA
     Dates: start: 201506
  5. METHYLPREDNISOLONE. [Concomitant]
     Active Substance: METHYLPREDNISOLONE
     Indication: STILL^S DISEASE ADULT ONSET

REACTIONS (8)
  - Cryptococcosis [Fatal]
  - Staphylococcal bacteraemia [Fatal]
  - Urinary tract infection [Unknown]
  - Otitis media [Unknown]
  - Cholelithiasis [Unknown]
  - Meningitis cryptococcal [Fatal]
  - Deep vein thrombosis [Unknown]
  - Genital herpes [Unknown]

NARRATIVE: CASE EVENT DATE: 20150714
